FAERS Safety Report 9554681 (Version 1)
Quarter: 2013Q3

REPORT INFORMATION
  Report Type: Spontaneous
  Country: CA (occurrence: CA)
  Receive Date: 20130926
  Receipt Date: 20130926
  Transmission Date: 20140515
  Serious: Yes (Other)
  Sender: FDA-Public Use
  Company Number: CA-BAXTER-2013BAX037528

PATIENT
  Sex: 0

DRUGS (3)
  1. PROCYTOX (CYCLOPHOSPHAMIDE) 1000MG/VIAL [Suspect]
     Indication: NEUROBLASTOMA
     Route: 042
  2. TOPOTECAN [Suspect]
     Indication: NEUROBLASTOMA
     Route: 042
  3. G-CSF [Concomitant]
     Indication: PROPHYLAXIS

REACTIONS (1)
  - Infection [Unknown]
